FAERS Safety Report 21721947 (Version 1)
Quarter: 2022Q4

REPORT INFORMATION
  Report Type: Report from Study
  Country: US (occurrence: US)
  Receive Date: 20221213
  Receipt Date: 20221213
  Transmission Date: 20230113
  Serious: Yes (Other)
  Sender: FDA-Public Use
  Company Number: US-ABBVIE-4233570

PATIENT
  Sex: Male

DRUGS (1)
  1. HUMIRA [Suspect]
     Active Substance: ADALIMUMAB
     Indication: Colitis ulcerative
     Route: 058

REACTIONS (6)
  - Hernia [Unknown]
  - Cataract [Unknown]
  - Knee operation [Unknown]
  - Intervertebral disc operation [Unknown]
  - Large intestine polyp [Unknown]
  - Toe operation [Unknown]

NARRATIVE: CASE EVENT DATE: 20150101
